FAERS Safety Report 8470416-5 (Version None)
Quarter: 2012Q2

REPORT INFORMATION
  Report Type: 
  Country: None (occurrence: None)
  Receive Date: 20120627
  Receipt Date: 20120625
  Transmission Date: 20120825
  Serious: Yes (Hospitalization)
  Sender: FDA-Public Use
  Company Number: US-BRACCO-008143

PATIENT
  Age: 42 Year
  Sex: Male
  Weight: 159 kg

DRUGS (4)
  1. ISOVUE-M 200 [Suspect]
     Indication: SPINAL MYELOGRAM
     Route: 037
     Dates: start: 20120601, end: 20120601
  2. HYDROCODONE BITARTRATE [Concomitant]
     Dosage: STOPPED TAKING 5 DAYS PRIOR TO SCAN
     Dates: end: 20120101
  3. ISOVUE-M 200 [Suspect]
     Indication: NECK PAIN
     Route: 037
     Dates: start: 20120601, end: 20120601
  4. ISOVUE-M 200 [Suspect]
     Indication: BACK PAIN
     Route: 037
     Dates: start: 20120601, end: 20120601

REACTIONS (1)
  - ENCEPHALITIS [None]
